FAERS Safety Report 8906045 (Version 2)
Quarter: 2013Q1

REPORT INFORMATION
  Report Type: Spontaneous
  Country: JP (occurrence: JP)
  Receive Date: 20121109
  Receipt Date: 20130215
  Transmission Date: 20140127
  Serious: Yes (Hospitalization)
  Sender: FDA-Public Use
  Company Number: JP-GLAXOSMITHKLINE-B0843298A

PATIENT
  Age: 53 Year
  Sex: Female
  Weight: 51 kg

DRUGS (2)
  1. HYCAMTIN [Suspect]
     Indication: OVARIAN CANCER RECURRENT
     Dosage: 1.2MGM2 PER DAY
     Route: 042
     Dates: start: 20120124, end: 20120128
  2. DEXAMETHASONE [Concomitant]
     Dosage: 6.6MG PER DAY
     Route: 042
     Dates: start: 20120124, end: 20120128

REACTIONS (11)
  - Ileus [Not Recovered/Not Resolved]
  - Decreased appetite [Recovered/Resolved]
  - White blood cell count decreased [Recovered/Resolved]
  - Red blood cell count decreased [Not Recovered/Not Resolved]
  - Anaemia [Not Recovered/Not Resolved]
  - Platelet count decreased [Recovered/Resolved]
  - Vomiting [Recovered/Resolved]
  - Nausea [Recovered/Resolved]
  - Dysgeusia [Recovered/Resolved]
  - Dysgeusia [Recovered/Resolved]
  - Hypogeusia [Recovered/Resolved]
